FAERS Safety Report 6163143-0 (Version None)
Quarter: 2009Q2

REPORT INFORMATION
  Report Type: 
  Country: None (occurrence: None)
  Receive Date: 20090420
  Receipt Date: 20090420
  Transmission Date: 20091009
  Serious: No
  Sender: FDA-Public Use
  Company Number: None

PATIENT
  Age: 65 Year
  Sex: Male
  Weight: 85.7 kg

DRUGS (15)
  1. VARENICLINE [Suspect]
     Indication: SMOKING CESSATION THERAPY
     Dosage: 1 MG BID PO
     Route: 048
     Dates: start: 20070522, end: 20080819
  2. ASPIRIN [Concomitant]
  3. CALCIUM CARB/VIT D [Concomitant]
  4. DOCUSATE SODIUM [Concomitant]
  5. FREESTYLE BLOOD GLUCOSE TEST STRIP [Concomitant]
  6. DEXTROSE 5% [Concomitant]
  7. INSULIN GLARGINE [Concomitant]
  8. LISINOPRIL [Concomitant]
  9. METOPROLOL SUCCINATE [Concomitant]
  10. NIASPAN [Concomitant]
  11. NOVOLOG [Concomitant]
  12. OMEPRAZOLE [Concomitant]
  13. SENNOSIDES [Concomitant]
  14. SIMVASTATIN [Concomitant]
  15. VARDENAFIL HCL [Concomitant]

REACTIONS (1)
  - NIGHTMARE [None]
